FAERS Safety Report 19555244 (Version 1)
Quarter: 2021Q3

REPORT INFORMATION
  Report Type: Spontaneous
  Country: PT (occurrence: PT)
  Receive Date: 20210714
  Receipt Date: 20210714
  Transmission Date: 20211014
  Serious: Yes (Death, Other)
  Sender: FDA-Public Use
  Company Number: PT-009507513-2105PRT002560

PATIENT
  Sex: Female

DRUGS (1)
  1. KEYTRUDA [Suspect]
     Active Substance: PEMBROLIZUMAB
     Indication: GASTRIC CANCER
     Dosage: 1 CYCLE

REACTIONS (4)
  - Sepsis [Unknown]
  - Malignant neoplasm progression [Unknown]
  - Internal haemorrhage [Fatal]
  - Product use in unapproved indication [Unknown]

NARRATIVE: CASE EVENT DATE: 202105
